FAERS Safety Report 7793454-4 (Version None)
Quarter: 2011Q4

REPORT INFORMATION
  Report Type: 
  Country: None (occurrence: None)
  Receive Date: 20111003
  Receipt Date: 20110929
  Transmission Date: 20120403
  Serious: Yes (Death, Other)
  Sender: FDA-Public Use
  Company Number: PHHY2011JP76840

PATIENT
  Age: 52 Year
  Sex: Male

DRUGS (6)
  1. PACLITAXEL [Suspect]
     Dosage: 310 MG/BODY
     Route: 042
     Dates: start: 20100927, end: 20100927
  2. PACLITAXEL [Suspect]
     Indication: LUNG ADENOCARCINOMA
     Dosage: 310 MG/BODY
     Route: 042
     Dates: start: 20100906, end: 20100906
  3. BEVACIZUMAB [Suspect]
     Dosage: 735 MG/BODY
     Route: 042
     Dates: start: 20100927, end: 20100927
  4. CARBOPLATIN [Suspect]
     Indication: LUNG ADENOCARCINOMA
     Dosage: 750 MG/BODY
     Route: 042
     Dates: start: 20100906, end: 20100906
  5. BEVACIZUMAB [Suspect]
     Indication: LUNG ADENOCARCINOMA
     Dosage: 735 MG/BODY
     Route: 042
     Dates: start: 20100906, end: 20100906
  6. CARBOPLATIN [Suspect]
     Dosage: 750 MG/BODY
     Route: 042
     Dates: start: 20100927, end: 20100927

REACTIONS (16)
  - PULMONARY HAEMORRHAGE [None]
  - CONSTIPATION [None]
  - CHILLS [None]
  - ALOPECIA [None]
  - ABDOMINAL DISTENSION [None]
  - NAUSEA [None]
  - BLOOD PRESSURE DECREASED [None]
  - ANAEMIA [None]
  - OBSTRUCTIVE AIRWAYS DISORDER [None]
  - LOSS OF CONSCIOUSNESS [None]
  - MYDRIASIS [None]
  - PUPILLARY REFLEX IMPAIRED [None]
  - HYPERTHERMIA [None]
  - HAEMATOTOXICITY [None]
  - HYPOXIA [None]
  - HYPOPHAGIA [None]
